FAERS Safety Report 5920011-4 (Version None)
Quarter: 2008Q4

REPORT INFORMATION
  Report Type: 
  Country: None (occurrence: None)
  Receive Date: 20081014
  Receipt Date: 20080930
  Transmission Date: 20090506
  Serious: Yes (Hospitalization)
  Sender: FDA-Public Use
  Company Number: 2008-03636

PATIENT
  Age: 63 Year
  Sex: Male
  Weight: 96.3 kg

DRUGS (7)
  1. VELCADE [Suspect]
     Indication: MANTLE CELL LYMPHOMA
     Dosage: 1.3 MG/M2, IV BOLUS
     Route: 040
     Dates: start: 20080902, end: 20080905
  2. CYCLOPHOSPHAMIDE [Suspect]
     Indication: MANTLE CELL LYMPHOMA
     Dosage: 300 MG, INTRAVENOUS
     Route: 042
     Dates: start: 20080902, end: 20080905
  3. DOXORUBICIN HCL [Suspect]
     Indication: MANTLE CELL LYMPHOMA
     Dosage: 25 MG/M2, INTRAVENOUS
     Route: 042
     Dates: start: 20080902, end: 20080904
  4. RITUXAMIB(RITUXIMAB) INJECTIO [Suspect]
     Indication: MANTLE CELL LYMPHOMA
     Dosage: 375 MG/M2, INTRAVENOUS
     Route: 042
     Dates: start: 20080902, end: 20080902
  5. VINCRISTINE [Suspect]
     Indication: MANTLE CELL LYMPHOMA
     Dosage: 1 MG, IV BOLUS
     Route: 040
     Dates: start: 20080902, end: 20080904
  6. DEXAMETHASONE TAB [Suspect]
     Indication: MANTLE CELL LYMPHOMA
     Dosage: 40 MG
     Dates: start: 20080902, end: 20080904
  7. NEULASTA [Suspect]
     Indication: MANTLE CELL LYMPHOMA
     Dosage: UNK
     Dates: start: 20080902, end: 20080907

REACTIONS (3)
  - ARTHRITIS [None]
  - DISEASE RECURRENCE [None]
  - GOUT [None]
